FAERS Safety Report 9052450 (Version 2)
Quarter: 2013Q1

REPORT INFORMATION
  Report Type: Spontaneous
  Country: HU (occurrence: HU)
  Receive Date: 20130207
  Receipt Date: 20130312
  Transmission Date: 20140127
  Serious: Yes (Hospitalization)
  Sender: FDA-Public Use
  Company Number: HU-TEVA-383745ISR

PATIENT
  Age: 71 Year
  Sex: Male

DRUGS (1)
  1. AMOXICILLIN W/CLAVULANIC ACID TEVA [Suspect]
     Indication: URINARY TRACT INFECTION

REACTIONS (5)
  - Jaundice [Recovered/Resolved]
  - Asthenia [Recovered/Resolved]
  - Pain [Recovered/Resolved]
  - Hyperbilirubinaemia [Recovered/Resolved]
  - Drug-induced liver injury [Recovered/Resolved]
